FAERS Safety Report 8433684-1 (Version None)
Quarter: 2012Q2

REPORT INFORMATION
  Report Type: 
  Country: None (occurrence: None)
  Receive Date: 20120613
  Receipt Date: 20120605
  Transmission Date: 20120825
  Serious: No
  Sender: FDA-Public Use
  Company Number: US-ASTRAZENECA-2012SE37788

PATIENT
  Age: 57 Year
  Sex: Male

DRUGS (1)
  1. CRESTOR [Suspect]
     Route: 048

REACTIONS (3)
  - DRUG HYPERSENSITIVITY [None]
  - PAIN [None]
  - MUSCULOSKELETAL PAIN [None]
